FAERS Safety Report 9922149 (Version 2)
Quarter: 2014Q2

REPORT INFORMATION
  Report Type: Spontaneous
  Country: FR (occurrence: FR)
  Receive Date: 20140225
  Receipt Date: 20140411
  Transmission Date: 20141212
  Serious: Yes (Hospitalization)
  Sender: FDA-Public Use
  Company Number: FR-NOVOPROD-400977

PATIENT
  Age: 75 Year
  Sex: Female
  Weight: 60 kg

DRUGS (5)
  1. NOVONORM [Suspect]
     Indication: TYPE 2 DIABETES MELLITUS
     Dosage: 2 DF, QD
     Route: 048
     Dates: end: 20140129
  2. JANUMET [Suspect]
     Indication: TYPE 2 DIABETES MELLITUS
     Dosage: 2 DF, QD
     Route: 048
     Dates: end: 20140203
  3. DIAMICRON [Suspect]
     Indication: TYPE 2 DIABETES MELLITUS
     Dosage: 3 DF, QD (60 MG)
     Route: 048
  4. AXELER [Suspect]
     Indication: HYPERTENSION
     Dosage: 1 DF, QD (40 MG/10 MG)
     Route: 048
  5. DOLENIO                            /00943602/ [Suspect]
     Indication: OSTEOARTHRITIS
     Dosage: 1 DF, QD
     Route: 048

REACTIONS (3)
  - Angioedema [Recovered/Resolved]
  - Hepatic steatosis [Recovered/Resolved]
  - Transaminases increased [Recovered/Resolved]
